FAERS Safety Report 7367946-6 (Version None)
Quarter: 2011Q1

REPORT INFORMATION
  Report Type: 
  Country: None (occurrence: None)
  Receive Date: 20110322
  Receipt Date: 20110317
  Transmission Date: 20110831
  Serious: Yes (Life-Threatening, Other)
  Sender: FDA-Public Use
  Company Number: PHHY2011US22190

PATIENT
  Sex: Male

DRUGS (1)
  1. TEKTURNA [Suspect]

REACTIONS (12)
  - FEELING ABNORMAL [None]
  - ALOPECIA [None]
  - MALAISE [None]
  - GASTROINTESTINAL INFECTION [None]
  - RENAL CYST [None]
  - WEIGHT DECREASED [None]
  - CONSTIPATION [None]
  - EYE INFECTION [None]
  - RHINITIS [None]
  - KIDNEY INFECTION [None]
  - HEADACHE [None]
  - VOMITING [None]
